FAERS Safety Report 10273067 (Version 1)
Quarter: 2014Q2

REPORT INFORMATION
  Report Type: Spontaneous
  Country: US (occurrence: None)
  Receive Date: 20140630
  Receipt Date: 20140630
  Transmission Date: 20141212
  Serious: Yes (Other)
  Sender: FDA-Public Use
  Company Number: None

PATIENT
  Age: 66 Year
  Sex: Female
  Weight: 65.77 kg

DRUGS (1)
  1. RESTASIS [Suspect]
     Indication: DRY EYE
     Dosage: ONE DROP?TWICE DAILY?INTO THE EYE
     Route: 031
     Dates: start: 20131111, end: 20140424

REACTIONS (6)
  - Eye infection [None]
  - Labyrinthitis [None]
  - Neck pain [None]
  - Gastrooesophageal reflux disease [None]
  - Condition aggravated [None]
  - Epistaxis [None]
